FAERS Safety Report 9450272 (Version 1)
Quarter: 2013Q3

REPORT INFORMATION
  Report Type: Spontaneous
  Country: BR (occurrence: None)
  Receive Date: 20130807
  Receipt Date: 20130807
  Transmission Date: 20140515
  Serious: Yes (Hospitalization)
  Sender: FDA-Public Use
  Company Number: VA;_02666_2013

PATIENT
  Age: 9 Year
  Sex: Male
  Weight: 36 kg

DRUGS (1)
  1. CARBAMAZEPINE [Suspect]
     Indication: CONVULSION
     Dosage: 4 WEEKS 2 DAYS
     Route: 048

REACTIONS (2)
  - Staphylococcal infection [None]
  - Drug reaction with eosinophilia and systemic symptoms [None]
